FAERS Safety Report 13384969 (Version 1)
Quarter: 2017Q1

REPORT INFORMATION
  Report Type: Report from Study
  Country: None (occurrence: DE)
  Receive Date: 20170329
  Receipt Date: 20170329
  Transmission Date: 20170429
  Serious: Yes (Other)
  Sender: FDA-Public Use
  Company Number: DE-ABBVIE-17P-062-1919123-00

PATIENT
  Age: 80 Year
  Sex: Female
  Weight: 54 kg

DRUGS (1)
  1. VENCLEXTA [Suspect]
     Active Substance: VENETOCLAX
     Indication: CHRONIC LYMPHOCYTIC LEUKAEMIA
     Dosage: LOADING DOSE PHASE: 20 MG
     Route: 048
     Dates: start: 20170306, end: 20170309

REACTIONS (6)
  - VIth nerve paralysis [Recovering/Resolving]
  - Gait disturbance [Recovering/Resolving]
  - Atrial fibrillation [Recovering/Resolving]
  - Neurological symptom [Recovering/Resolving]
  - Dysarthria [Recovering/Resolving]
  - Cerebellar syndrome [Recovering/Resolving]

NARRATIVE: CASE EVENT DATE: 20170310
